FAERS Safety Report 9716771 (Version 1)
Quarter: 2013Q4

REPORT INFORMATION
  Report Type: Spontaneous
  Country: GB (occurrence: GB)
  Receive Date: 20131127
  Receipt Date: 20131127
  Transmission Date: 20140711
  Serious: Yes (Disabling)
  Sender: FDA-Public Use
  Company Number: GB-TEVA-445739ISR

PATIENT
  Age: 75 Year
  Sex: Male
  Weight: 76.2 kg

DRUGS (6)
  1. DONEPEZIL [Suspect]
     Indication: DEMENTIA ALZHEIMER^S TYPE
     Route: 048
     Dates: start: 201309, end: 20131028
  2. CEFALEXIN [Concomitant]
     Dosage: 250 MILLIGRAM DAILY;
  3. LIPITOR [Concomitant]
     Dosage: 80 MILLIGRAM DAILY;
  4. PERINDOPRIL [Concomitant]
     Dosage: 8 MILLIGRAM DAILY;
  5. CLOPIDOGREL [Concomitant]
     Dosage: 75 MILLIGRAM DAILY;
  6. ADALAT LA [Concomitant]

REACTIONS (4)
  - Libido increased [Recovered/Resolved]
  - Emotional distress [Unknown]
  - Fatigue [Unknown]
  - Sexual dysfunction [Unknown]
